FAERS Safety Report 5913119-0 (Version None)
Quarter: 2008Q4

REPORT INFORMATION
  Report Type: 
  Country: None (occurrence: None)
  Receive Date: 20081008
  Receipt Date: 20081008
  Transmission Date: 20090506
  Serious: Yes (Disabling)
  Sender: FDA-Public Use
  Company Number: None

PATIENT
  Sex: Female
  Weight: 58.514 kg

DRUGS (4)
  1. EFFEXOR XR [Suspect]
     Indication: AFFECTIVE DISORDER
     Dosage: 75 MGS DAILY ORAL
     Route: 048
     Dates: start: 20080401, end: 20080801
  2. CRESTOR [Suspect]
     Indication: BLOOD CHOLESTEROL
     Dosage: 100 MGS DAILY ORAL
     Route: 048
  3. ALENDRONATE SODIUM [Suspect]
     Indication: RESORPTION BONE INCREASED
  4. ... [Concomitant]

REACTIONS (13)
  - ANOREXIA [None]
  - BLEPHAROSPASM [None]
  - CEREBRAL DISORDER [None]
  - CONFUSIONAL STATE [None]
  - DRY MOUTH [None]
  - HEADACHE [None]
  - MUSCLE SPASMS [None]
  - PRURITUS [None]
  - RASH [None]
  - TINNITUS [None]
  - VERTIGO [None]
  - VISION BLURRED [None]
  - WEIGHT DECREASED [None]
